FAERS Safety Report 24788475 (Version 1)
Quarter: 2024Q4

REPORT INFORMATION
  Report Type: Spontaneous
  Country: US (occurrence: None)
  Receive Date: 20241227
  Receipt Date: 20241227
  Transmission Date: 20250114
  Serious: Yes (Other)
  Sender: Public
  Company Number: None

PATIENT
  Age: 42 Year
  Sex: Male
  Weight: 83.7 kg

DRUGS (2)
  1. FINASTERIDE\MINOXIDIL [Suspect]
     Active Substance: FINASTERIDE\MINOXIDIL
     Indication: Alopecia
     Dosage: DAILY TRNSDERMAL
     Route: 062
     Dates: start: 20241223, end: 20241226
  2. KIRKLAND SIGNATURE USDA ORGANIC MULTIVITAMIN, 80 COATED TABLETS [Concomitant]

REACTIONS (3)
  - Dermatitis acneiform [None]
  - Swelling face [None]
  - Ear swelling [None]

NARRATIVE: CASE EVENT DATE: 20241225
